FAERS Safety Report 6319100-4 (Version None)
Quarter: 2009Q3

REPORT INFORMATION
  Report Type: 
  Country: None (occurrence: None)
  Receive Date: 20090821
  Receipt Date: 20080804
  Transmission Date: 20100115
  Serious: No
  Sender: FDA-Public Use
  Company Number: US-ABBOTT-08P-163-0468380-00

PATIENT
  Sex: Male

DRUGS (2)
  1. NIASPAN [Suspect]
     Indication: HIGH DENSITY LIPOPROTEIN DECREASED
     Dosage: NOT REPORTED
     Dates: start: 20070101
  2. NIASPAN [Suspect]
     Dosage: NOT REPORTED

REACTIONS (1)
  - DRUG INEFFECTIVE [None]
